FAERS Safety Report 24948941 (Version 1)
Quarter: 2025Q1

REPORT INFORMATION
  Report Type: Spontaneous
  Country: BR (occurrence: BR)
  Receive Date: 20250210
  Receipt Date: 20250210
  Transmission Date: 20250409
  Serious: Yes (Other)
  Sender: PFIZER
  Company Number: BR-PFIZER INC-PV202500014720

PATIENT
  Age: 35 Year
  Sex: Male

DRUGS (1)
  1. TALIGLUCERASE ALFA [Suspect]
     Active Substance: TALIGLUCERASE ALFA
     Indication: Gaucher^s disease type III
     Route: 042
     Dates: start: 20160216

REACTIONS (2)
  - Seizure [Unknown]
  - Off label use [Unknown]
